FAERS Safety Report 5772673-2 (Version None)
Quarter: 2008Q2

REPORT INFORMATION
  Report Type: 
  Country: None (occurrence: None)
  Receive Date: 20080613
  Receipt Date: 20080310
  Transmission Date: 20081010
  Serious: No
  Sender: FDA-Public Use
  Company Number: US-BOEHRINGER INGELHEIM GMBH, GERMANY-2007-BP-15869BP

PATIENT
  Sex: Male
  Weight: 101 kg

DRUGS (1)
  1. MIRAPEX [Suspect]
     Indication: PARKINSON'S DISEASE
     Dates: start: 20021021, end: 20070104

REACTIONS (7)
  - DEPRESSION [None]
  - EMOTIONAL DISTRESS [None]
  - HYPERPHAGIA [None]
  - INJURY [None]
  - OBSESSIVE-COMPULSIVE DISORDER [None]
  - PATHOLOGICAL GAMBLING [None]
  - WEIGHT INCREASED [None]
